FAERS Safety Report 8231957-9 (Version None)
Quarter: 2012Q1

REPORT INFORMATION
  Report Type: 
  Country: None (occurrence: None)
  Receive Date: 20120323
  Receipt Date: 20120314
  Transmission Date: 20120608
  Serious: Yes (Other)
  Sender: FDA-Public Use
  Company Number: US-JNJFOC-20120308359

PATIENT
  Sex: Female
  Weight: 57.15 kg

DRUGS (4)
  1. TOPAMAX [Suspect]
     Route: 048
     Dates: start: 20100101
  2. TOPIRAMATE [Suspect]
     Indication: MIGRAINE PROPHYLAXIS
     Route: 048
  3. TOPAMAX [Suspect]
     Indication: MIGRAINE PROPHYLAXIS
     Route: 048
  4. MAXALT [Concomitant]
     Indication: MIGRAINE
     Route: 048
     Dates: start: 20100101

REACTIONS (3)
  - ACTIVITIES OF DAILY LIVING IMPAIRED [None]
  - VOMITING [None]
  - DRUG INEFFECTIVE [None]
